FAERS Safety Report 12208346 (Version 3)
Quarter: 2016Q2

REPORT INFORMATION
  Report Type: Report from Study
  Country: US (occurrence: US)
  Receive Date: 20160324
  Receipt Date: 20160516
  Transmission Date: 20160815
  Serious: Yes (Hospitalization, Other)
  Sender: FDA-Public Use
  Company Number: US-BAYER-2016-053138

PATIENT
  Age: 69 Year
  Sex: Male

DRUGS (3)
  1. XOFIGO [Suspect]
     Active Substance: RADIUM RA-223 DICHLORIDE
     Indication: PROSTATE CANCER STAGE IV
     Dosage: 104.60 UCI, EVERY 28 DAYS
     Route: 042
     Dates: start: 20160217
  2. XOFIGO [Suspect]
     Active Substance: RADIUM RA-223 DICHLORIDE
     Indication: PROSTATE CANCER STAGE IV
     Dosage: 97.05 UCI, EVERY 28 DAYS
     Route: 042
     Dates: start: 20160420, end: 20160420
  3. XOFIGO [Suspect]
     Active Substance: RADIUM RA-223 DICHLORIDE
     Indication: METASTASES TO BONE
     Dosage: 102.20 UCI, EVERY 28 DAYS
     Route: 042
     Dates: start: 20160323, end: 20160323

REACTIONS (3)
  - Limb injury [None]
  - Hospitalisation [None]
  - Hospitalisation [None]

NARRATIVE: CASE EVENT DATE: 201603
